FAERS Safety Report 4971724-2 (Version None)
Quarter: 2006Q2

REPORT INFORMATION
  Report Type: 
  Country: None (occurrence: None)
  Receive Date: 20060413
  Receipt Date: 20060329
  Transmission Date: 20061013
  Serious: Yes (Hospitalization, Other)
  Sender: FDA-Public Use
  Company Number: PHEH2006US04241

PATIENT
  Age: 76 Year
  Sex: Female
  Weight: 61.678 kg

DRUGS (9)
  1. SANDOSTATIN LAR [Suspect]
     Indication: CARCINOID SYNDROME
     Dosage: 60 MG, QMO
     Route: 030
     Dates: start: 20041124
  2. SANDOSTATIN LAR [Suspect]
     Dosage: 40 MG, QMO
     Route: 030
  3. SANDOSTATIN LAR [Suspect]
     Dosage: 40 MG, QMO
     Route: 030
     Dates: start: 20020305, end: 20041124
  4. SYNTHROID [Concomitant]
     Indication: HYPOTHYROIDISM
     Dosage: 0.075 MG, QD
     Route: 048
  5. PREVACID [Concomitant]
     Dosage: 30 MG, QD
     Route: 048
  6. TOPROL-XL [Concomitant]
     Indication: HYPERTENSION
     Dosage: 25 MG, BID
     Route: 048
  7. VICOPROFEN [Concomitant]
     Dosage: Q6HRS PRN
     Route: 048
  8. ZOMETA [Concomitant]
     Indication: METASTASES TO BONE
     Dosage: 4 MG, QMO
  9. INTERFERON [Concomitant]
     Dates: start: 20050711, end: 20051101

REACTIONS (10)
  - BLOOD CHLORIDE DECREASED [None]
  - BLOOD CREATININE INCREASED [None]
  - BLOOD UREA INCREASED [None]
  - FALL [None]
  - GAIT DISTURBANCE [None]
  - HYPOKALAEMIA [None]
  - HYPONATRAEMIA [None]
  - MUSCULAR WEAKNESS [None]
  - NUCLEAR MAGNETIC RESONANCE IMAGING ABNORMAL [None]
  - OEDEMA PERIPHERAL [None]
